FAERS Safety Report 6620258-8 (Version None)
Quarter: 2010Q1

REPORT INFORMATION
  Report Type: 
  Country: None (occurrence: None)
  Receive Date: 20100308
  Receipt Date: 20100308
  Transmission Date: 20100710
  Serious: Yes (Death)
  Sender: FDA-Public Use
  Company Number: None

PATIENT
  Age: 74 Year
  Sex: Male

DRUGS (11)
  1. REVLIMID [Suspect]
     Indication: MULTIPLE MYELOMA
     Dosage: 15MG DAILY ORALLY
     Route: 048
     Dates: start: 20090602, end: 20090722
  2. ISORDIL [Concomitant]
  3. METOPROLOL [Concomitant]
  4. ALENDRONATE SODIUM [Concomitant]
  5. LISINOPRIL [Concomitant]
  6. OMEPRAZOLE [Concomitant]
  7. LASIX [Concomitant]
  8. MULTI-VITAMIN [Concomitant]
  9. HYDRALAZINE HCL [Concomitant]
  10. ALLOPURINOL [Concomitant]
  11. TERAZOSIN HCL [Concomitant]

REACTIONS (1)
  - DISEASE PROGRESSION [None]
